FAERS Safety Report 12937419 (Version 1)
Quarter: 2016Q4

REPORT INFORMATION
  Report Type: Spontaneous
  Country: PL (occurrence: PL)
  Receive Date: 20161114
  Receipt Date: 20161114
  Transmission Date: 20170207
  Serious: Yes (Hospitalization, Other)
  Sender: FDA-Public Use
  Company Number: PL-PFIZER INC-2016520262

PATIENT
  Age: 65 Year
  Sex: Male

DRUGS (1)
  1. INLYTA [Suspect]
     Active Substance: AXITINIB
     Indication: RENAL CELL CARCINOMA
     Dosage: 5 MG, 2X/DAY
     Dates: start: 201604

REACTIONS (10)
  - Blood creatinine increased [Unknown]
  - Electrocardiogram QT prolonged [Unknown]
  - Abdominal pain [Unknown]
  - Diarrhoea [Unknown]
  - Proteinuria [Unknown]
  - Myalgia [Unknown]
  - Pulmonary embolism [Unknown]
  - Anaemia [Unknown]
  - Blood pressure increased [Unknown]
  - Decreased appetite [Unknown]
